FAERS Safety Report 22073660 (Version 1)
Quarter: 2023Q1

REPORT INFORMATION
  Report Type: Spontaneous
  Country: US (occurrence: None)
  Receive Date: 20230307
  Receipt Date: 20230307
  Transmission Date: 20230418
  Serious: Yes (Hospitalization)
  Sender: FDA-Public Use
  Company Number: None

PATIENT
  Sex: Male

DRUGS (26)
  1. AUSTEDO [Suspect]
     Active Substance: DEUTETRABENAZINE
     Indication: Product used for unknown indication
     Dosage: FREQUENCY : TWICE A DAY;?
     Route: 048
     Dates: start: 20221201
  2. AUSTEDO [Suspect]
     Active Substance: DEUTETRABENAZINE
     Indication: Product used for unknown indication
     Dosage: FREQUENCY : TWICE A DAY;?
     Route: 048
     Dates: start: 20221201
  3. BENZTROPINE [Concomitant]
     Active Substance: BENZTROPINE
  4. CLONAZEPAM TAB 0.5MG [Concomitant]
  5. DESMOPRESSIN TAB 0.1 MG [Concomitant]
  6. DIVALPROEX CAP 125MG [Concomitant]
  7. HYDROCORT AC SUP 25MG [Concomitant]
  8. INGREZZA CAP 80MG [Concomitant]
  9. INGREZZA 80 MG CAP [Concomitant]
  10. LEVOTHYROXIN TAB 50MCG [Concomitant]
  11. LITHIUM GARB CAP 600MG [Concomitant]
  12. LITHIUM GARB TAB 300MG ER [Concomitant]
  13. LORAZEPAM TAB 0.5MG [Concomitant]
  14. LORAZEPAM TAB 1 MG [Concomitant]
  15. MEMANTINE TAB HCL 10MG [Concomitant]
  16. MEMANTINE TAB HCL 5MG [Concomitant]
  17. OXCARBAZEPIN TAB 150MG [Concomitant]
  18. OXCARBAZEPIN TAB 300MG [Concomitant]
  19. PRAZOSIN HCL CAP 1 MG [Concomitant]
  20. PRAZOSIN HCL CAP 2MG [Concomitant]
  21. QUETIAPINE TAB 100MG [Concomitant]
  22. QUETIAPINE TAB 400MG [Concomitant]
  23. QUETIAPINE TAB 50MG [Concomitant]
  24. SUPREP BOWEL SOL PREP KIT [Concomitant]
  25. TRIHEXYPHEN TAB 2MG [Concomitant]
  26. ZOLOFT TAB 50MG [Concomitant]

REACTIONS (5)
  - Therapy change [None]
  - Intentional self-injury [None]
  - Aggression [None]
  - Drug interaction [None]
  - Therapy change [None]
